FAERS Safety Report 22643259 (Version 1)
Quarter: 2023Q2

REPORT INFORMATION
  Report Type: Report from Study
  Country: US (occurrence: US)
  Receive Date: 20230627
  Receipt Date: 20230627
  Transmission Date: 20230721
  Serious: Yes (Hospitalization)
  Sender: FDA-Public Use
  Company Number: US-ABBVIE-5305090

PATIENT
  Sex: Female

DRUGS (1)
  1. VENCLEXTA [Suspect]
     Active Substance: VENETOCLAX
     Indication: Acute myeloid leukaemia
     Dosage: THERAPY END DATE: 2023
     Route: 048
     Dates: start: 20230320

REACTIONS (2)
  - Haematological infection [Unknown]
  - Nausea [Unknown]

NARRATIVE: CASE EVENT DATE: 20230101
